FAERS Safety Report 5349156-7 (Version None)
Quarter: 2007Q2

REPORT INFORMATION
  Report Type: 
  Country: None (occurrence: None)
  Receive Date: 20070607
  Receipt Date: 20070605
  Transmission Date: 20071010
  Serious: Yes (Hospitalization)
  Sender: FDA-Public Use
  Company Number: GBWYE603208MAY07

PATIENT
  Age: 9 Year
  Sex: Female

DRUGS (3)
  1. IBUPROFEN [Suspect]
     Indication: MENINGOCOCCAL SEPSIS
     Dosage: UNKNOWN
     Route: 048
  2. ANADIN PARACETAMOL [Suspect]
     Indication: PYREXIA
     Dosage: UNKNOWN
     Route: 048
  3. CEFTRIAXONE [Suspect]
     Dosage: UNKNOWN
     Route: 042

REACTIONS (7)
  - ABDOMINAL PAIN [None]
  - ANURIA [None]
  - BLOOD CREATININE INCREASED [None]
  - BLOOD UREA INCREASED [None]
  - HYDRONEPHROSIS [None]
  - RENAL PAPILLARY NECROSIS [None]
  - URETERIC OBSTRUCTION [None]
